FAERS Safety Report 20421332 (Version 1)
Quarter: 2022Q1

REPORT INFORMATION
  Report Type: Spontaneous
  Country: US (occurrence: None)
  Receive Date: 20220203
  Receipt Date: 20220203
  Transmission Date: 20220424
  Serious: Yes (Other)
  Sender: FDA-Public Use
  Company Number: US-ACS-002175

PATIENT
  Sex: Female

DRUGS (3)
  1. CEFTRIAXONE [Suspect]
     Active Substance: CEFTRIAXONE
     Route: 030
     Dates: start: 20220112
  2. LIDOCAINE [Suspect]
     Active Substance: LIDOCAINE
     Route: 030
     Dates: start: 20220112
  3. DECADRON [Suspect]
     Active Substance: DEXAMETHASONE
     Dosage: DECADRON 8 MG IM
     Route: 030
     Dates: start: 20220112

REACTIONS (1)
  - Anaphylactic reaction [Unknown]

NARRATIVE: CASE EVENT DATE: 20220112
